FAERS Safety Report 10160347 (Version 2)
Quarter: 2014Q3

REPORT INFORMATION
  Report Type: Spontaneous
  Country: US (occurrence: US)
  Receive Date: 20140508
  Receipt Date: 20140820
  Transmission Date: 20150326
  Serious: Yes (Hospitalization)
  Sender: FDA-Public Use
  Company Number: US-GLAXOSMITHKLINE-A1072438A

PATIENT
  Sex: Female

DRUGS (3)
  1. HOMEOPATHIC REMEDY [Suspect]
     Active Substance: HOMEOPATHICS
     Indication: PRODUCT USED FOR UNKNOWN INDICATION
     Route: 065
  2. VOTRIENT [Suspect]
     Active Substance: PAZOPANIB HYDROCHLORIDE
     Indication: RENAL CANCER
     Dosage: 800MG PER DAY
     Route: 065
     Dates: start: 201305
  3. OXYCODONE [Suspect]
     Active Substance: OXYCODONE
     Indication: MUSCLE STRAIN
     Route: 065

REACTIONS (6)
  - Lung disorder [Unknown]
  - Investigation [Not Recovered/Not Resolved]
  - Constipation [Unknown]
  - Diarrhoea [Recovered/Resolved]
  - Dyspnoea [Unknown]
  - Nausea [Unknown]
